FAERS Safety Report 10279971 (Version 1)
Quarter: 2014Q3

REPORT INFORMATION
  Report Type: Spontaneous
  Country: GB (occurrence: GB)
  Receive Date: 20140707
  Receipt Date: 20140707
  Transmission Date: 20150326
  Serious: Yes (Life-Threatening, Other)
  Sender: FDA-Public Use
  Company Number: GB-JNJFOC-20140617255

PATIENT
  Age: 65 Year
  Sex: Male
  Weight: 34.88 kg

DRUGS (17)
  1. NICORANDIL [Concomitant]
     Active Substance: NICORANDIL
     Route: 065
  2. NUTRITIONAL SUPPLEMENT [Concomitant]
     Active Substance: DIETARY SUPPLEMENT
     Route: 065
  3. CLOPIDOGREL [Concomitant]
     Active Substance: CLOPIDOGREL BISULFATE
     Route: 065
  4. ANGEZE [Concomitant]
     Route: 065
  5. PRAVASTATIN [Concomitant]
     Active Substance: PRAVASTATIN\PRAVASTATIN SODIUM
     Route: 065
  6. VENTOLIN [Concomitant]
     Active Substance: ALBUTEROL SULFATE
     Route: 065
  7. DURAGESIC [Suspect]
     Active Substance: FENTANYL
     Indication: ANALGESIC THERAPY
     Route: 062
     Dates: end: 2014
  8. SUCRALFATE. [Concomitant]
     Active Substance: SUCRALFATE
     Route: 065
  9. FOLIC ACID. [Concomitant]
     Active Substance: FOLIC ACID
     Route: 065
  10. MEZAVANT XL [Concomitant]
     Active Substance: MESALAMINE
     Route: 065
  11. SYMBICORT [Concomitant]
     Active Substance: BUDESONIDE\FORMOTEROL FUMARATE DIHYDRATE
     Route: 065
  12. METOCLOPRAMIDE. [Concomitant]
     Active Substance: METOCLOPRAMIDE
     Route: 065
  13. TRIPOTASSIUM DICITRATOBISMUTHATE [Concomitant]
     Route: 065
  14. LANSOPRAZOLE. [Concomitant]
     Active Substance: LANSOPRAZOLE
     Route: 065
  15. PARACETAMOL [Concomitant]
     Active Substance: ACETAMINOPHEN
     Route: 065
  16. TIOTROPIUM BROMIDE [Concomitant]
     Active Substance: TIOTROPIUM BROMIDE
     Route: 065
  17. AMITRIPTYLINE [Concomitant]
     Active Substance: AMITRIPTYLINE
     Route: 065

REACTIONS (4)
  - Vomiting [Recovering/Resolving]
  - Application site erosion [Recovering/Resolving]
  - Hypersomnia [Recovering/Resolving]
  - Depressed level of consciousness [Recovering/Resolving]
